FAERS Safety Report 24351566 (Version 1)
Quarter: 2024Q3

REPORT INFORMATION
  Report Type: Spontaneous
  Country: US (occurrence: US)
  Receive Date: 20240923
  Receipt Date: 20240923
  Transmission Date: 20241016
  Serious: No
  Sender: REVANCE THERAPEUTICS
  Company Number: US-REVANCE THERAPEUTICS INC.-US-REV-2024-000422

PATIENT

DRUGS (1)
  1. DAXIBOTULINUMTOXIN A-LANM [Suspect]
     Active Substance: DAXIBOTULINUMTOXIN A-LANM
     Indication: Skin wrinkling
     Dosage: TOTAL 50 U: FRONTALIS (26 U), GLABELLAR LINES (12 U), LCL (12 U)
     Route: 065
     Dates: start: 20240721

REACTIONS (6)
  - Injection site urticaria [Unknown]
  - Injection site swelling [Unknown]
  - Injection site mass [Unknown]
  - Injection site bruising [Unknown]
  - Underdose [Unknown]
  - Off label use [Unknown]

NARRATIVE: CASE EVENT DATE: 20240721
